FAERS Safety Report 24857920 (Version 1)
Quarter: 2025Q1

REPORT INFORMATION
  Report Type: Spontaneous
  Country: US (occurrence: US)
  Receive Date: 20250117
  Receipt Date: 20250117
  Transmission Date: 20250409
  Serious: No
  Sender: ABBVIE
  Company Number: US-ABBVIE-6087596

PATIENT
  Sex: Female

DRUGS (1)
  1. RISANKIZUMAB [Suspect]
     Active Substance: RISANKIZUMAB
     Indication: Psoriasis
     Route: 048
     Dates: start: 202412

REACTIONS (4)
  - Influenza [Unknown]
  - Gastritis [Unknown]
  - Immunodeficiency [Unknown]
  - Illness [Unknown]
